FAERS Safety Report 5646266-1 (Version None)
Quarter: 2008Q1

REPORT INFORMATION
  Report Type: 
  Country: None (occurrence: None)
  Receive Date: 20080301
  Receipt Date: 20080221
  Transmission Date: 20080703
  Serious: Yes (Other)
  Sender: FDA-Public Use
  Company Number: US-JNJFOC-20080205665

PATIENT
  Sex: Female
  Weight: 58.51 kg

DRUGS (2)
  1. REMICADE [Suspect]
     Indication: CROHN'S DISEASE
     Route: 042
  2. 6MP [Concomitant]
     Indication: CROHN'S DISEASE

REACTIONS (9)
  - ARTHRALGIA [None]
  - BLOOD PRESSURE INCREASED [None]
  - DYSPNOEA [None]
  - GINGIVAL PAIN [None]
  - GLOSSODYNIA [None]
  - HYPERSENSITIVITY [None]
  - INTESTINAL RESECTION [None]
  - PYREXIA [None]
  - SEPSIS [None]
